FAERS Safety Report 18717312 (Version 3)
Quarter: 2021Q1

REPORT INFORMATION
  Report Type: Report from Study
  Country: None (occurrence: FR)
  Receive Date: 20210108
  Receipt Date: 20210218
  Transmission Date: 20210419
  Serious: Yes (Hospitalization, Disabling, Other)
  Sender: FDA-Public Use
  Company Number: FR-ABBVIE-21K-056-3721197-00

PATIENT
  Age: 70 Year
  Sex: Male

DRUGS (3)
  1. DUODOPA [Suspect]
     Active Substance: CARBIDOPA\LEVODOPA
  2. XEROQUEL [Concomitant]
     Active Substance: QUETIAPINE FUMARATE
     Indication: HALLUCINATION
     Dates: start: 20201216
  3. DUODOPA [Suspect]
     Active Substance: CARBIDOPA\LEVODOPA
     Indication: PARKINSON^S DISEASE
     Dosage: MD:13ML, DURING THE DAY: 5.5ML, ADDITIONAL DOSE: 2.2ML/H
     Route: 050
     Dates: start: 201709

REACTIONS (12)
  - Self esteem decreased [Unknown]
  - Stoma site erythema [Not Recovered/Not Resolved]
  - Aphasia [Not Recovered/Not Resolved]
  - Freezing phenomenon [Recovering/Resolving]
  - Hallucination [Recovering/Resolving]
  - Stoma site inflammation [Not Recovered/Not Resolved]
  - Knee arthroplasty [Recovering/Resolving]
  - Device related infection [Not Recovered/Not Resolved]
  - Lividity [Recovering/Resolving]
  - Aphonia [Recovering/Resolving]
  - Malaise [Recovering/Resolving]
  - Stoma site discharge [Not Recovered/Not Resolved]

NARRATIVE: CASE EVENT DATE: 202012
